FAERS Safety Report 8485606-5 (Version None)
Quarter: 2012Q3

REPORT INFORMATION
  Report Type: 
  Country: None (occurrence: None)
  Receive Date: 20120703
  Receipt Date: 20120627
  Transmission Date: 20120928
  Serious: Yes (Other)
  Sender: FDA-Public Use
  Company Number: ES-JHP PHARMACEUTICALS, LLC-JHP201200325

PATIENT
  Age: 60 Year
  Sex: Female
  Weight: 55 kg

DRUGS (3)
  1. SIMVASTATIN [Concomitant]
     Dosage: 10 MG, DAILY
  2. EPINEPHRINE [Suspect]
     Indication: ANAPHYLACTIC REACTION
     Dosage: 0.5 MG, UNK
     Route: 030
  3. METRONIDAZOLE [Concomitant]
     Dosage: 125 MG, UNK

REACTIONS (2)
  - CEREBRAL VASOCONSTRICTION [None]
  - ISCHAEMIC STROKE [None]
